FAERS Safety Report 5472926-1 (Version None)
Quarter: 2007Q4

REPORT INFORMATION
  Report Type: 
  Country: None (occurrence: None)
  Receive Date: 20071001
  Receipt Date: 20070920
  Transmission Date: 20080405
  Serious: Yes (Hospitalization)
  Sender: FDA-Public Use
  Company Number: B0488991A

PATIENT
  Age: 45 Year
  Sex: Female

DRUGS (7)
  1. AUGMENTIN '125' [Suspect]
     Indication: TONSILLAR DISORDER
     Route: 048
     Dates: start: 20070728, end: 20070803
  2. TAVANIC [Suspect]
     Indication: TONSILLAR DISORDER
     Route: 048
     Dates: start: 20070803, end: 20070810
  3. ASPIRIN [Suspect]
     Indication: TONSILLAR DISORDER
     Dosage: 1G THREE TIMES PER DAY
     Route: 048
     Dates: start: 20070803, end: 20070810
  4. TRIFLUCAN [Suspect]
     Indication: ORAL FUNGAL INFECTION
     Route: 048
     Dates: start: 20070811, end: 20070818
  5. IRBESARTAN [Concomitant]
     Route: 065
  6. LESCOL [Concomitant]
     Route: 065
  7. ACARBOSE [Concomitant]
     Route: 065

REACTIONS (4)
  - ORAL FUNGAL INFECTION [None]
  - PURPURA [None]
  - THROMBOCYTOPENIA [None]
  - THROMBOCYTOPENIC PURPURA [None]
